FAERS Safety Report 9637070 (Version 1)
Quarter: 2013Q4

REPORT INFORMATION
  Report Type: Spontaneous
  Country: US (occurrence: US)
  Receive Date: 20131022
  Receipt Date: 20131022
  Transmission Date: 20140711
  Serious: Yes (Other)
  Sender: FDA-Public Use
  Company Number: US-ROXANE LABORATORIES, INC.-2013-RO-01696RO

PATIENT
  Age: 66 Year
  Sex: Female

DRUGS (5)
  1. CALCITRIOL [Suspect]
     Indication: HYPOCALCAEMIA
     Dosage: 0.25 MCG
     Route: 048
  2. CALCIUM CARBONATE [Suspect]
     Indication: HYPOCALCAEMIA
  3. CHOLECALCIFEROL [Suspect]
     Indication: HYPOCALCAEMIA
  4. ASPIRIN WITH CALCIUM [Suspect]
     Indication: HYPOCALCAEMIA
  5. MULTIVITAMIN WITH CALCIUM [Suspect]
     Indication: HYPOCALCAEMIA

REACTIONS (1)
  - Calciphylaxis [Recovered/Resolved]
